FAERS Safety Report 12806807 (Version 1)
Quarter: 2016Q4

REPORT INFORMATION
  Report Type: Spontaneous
  Country: US (occurrence: US)
  Receive Date: 20161004
  Receipt Date: 20161004
  Transmission Date: 20170207
  Serious: No
  Sender: FDA-Public Use
  Company Number: US-JNJFOC-20160815373

PATIENT
  Age: 65 Year
  Sex: Female
  Weight: 58.06 kg

DRUGS (4)
  1. SUDAFED 24 HOUR [Suspect]
     Active Substance: PSEUDOEPHEDRINE HYDROCHLORIDE
     Indication: REFLUX LARYNGITIS
     Dosage: DAILY, BEEN TAKING FOR CLOSE TO A YEAR NOW
     Route: 048
  2. SUDAFED 24 HOUR [Suspect]
     Active Substance: PSEUDOEPHEDRINE HYDROCHLORIDE
     Indication: ASTHMA
     Dosage: DAILY, BEEN TAKING FOR CLOSE TO A YEAR NOW
     Route: 048
  3. SUDAFED 24 HOUR [Suspect]
     Active Substance: PSEUDOEPHEDRINE HYDROCHLORIDE
     Indication: NASAL DECONGESTION THERAPY
     Dosage: DAILY, BEEN TAKING FOR CLOSE TO A YEAR NOW
     Route: 048
  4. SUDAFED 24 HOUR [Suspect]
     Active Substance: PSEUDOEPHEDRINE HYDROCHLORIDE
     Indication: PHARYNGEAL OEDEMA
     Dosage: DAILY, BEEN TAKING FOR CLOSE TO A YEAR NOW
     Route: 048

REACTIONS (5)
  - Product use issue [Recovering/Resolving]
  - Therapeutic response unexpected [Unknown]
  - Off label use [Recovering/Resolving]
  - Product packaging issue [Unknown]
  - Blood pressure increased [Recovering/Resolving]
